FAERS Safety Report 15235604 (Version 2)
Quarter: 2018Q3

REPORT INFORMATION
  Report Type: Spontaneous
  Country: DE (occurrence: DE)
  Receive Date: 20180803
  Receipt Date: 20180914
  Transmission Date: 20181010
  Serious: Yes (Other)
  Sender: FDA-Public Use
  Company Number: DE-TEVA-2018-DE-934336

PATIENT
  Sex: Female

DRUGS (1)
  1. COPAXONE [Suspect]
     Active Substance: GLATIRAMER ACETATE
     Dosage: UNKNOWN FORM STRENGTH
     Dates: start: 201601

REACTIONS (2)
  - Coating in mouth [Not Recovered/Not Resolved]
  - Geotrichum infection [Not Recovered/Not Resolved]

NARRATIVE: CASE EVENT DATE: 201704
